FAERS Safety Report 5118742-1 (Version None)
Quarter: 2006Q3

REPORT INFORMATION
  Report Type: 
  Country: None (occurrence: None)
  Receive Date: 20060927
  Receipt Date: 20060920
  Transmission Date: 20061208
  Serious: Yes (Other)
  Sender: FDA-Public Use
  Company Number: 2006103166

PATIENT
  Age: 45 Year
  Sex: Male
  Weight: 80 kg

DRUGS (7)
  1. LIPITOR [Suspect]
     Indication: PROPHYLAXIS
     Dosage: 10 MG (10 MG, 1 IN 1 D), ORAL
     Route: 048
     Dates: start: 20060301, end: 20060301
  2. PHENYTOIN [Suspect]
  3. ASPIRIN [Concomitant]
  4. CLOBAZAM (CLOBAZAM) [Concomitant]
  5. CLOPIDOGREL [Concomitant]
  6. SENNA (SENNA) [Concomitant]
  7. TEGRETOL [Concomitant]

REACTIONS (8)
  - CONDITION AGGRAVATED [None]
  - DRUG DOSE OMISSION [None]
  - DRUG INTERACTION [None]
  - IMPAIRED DRIVING ABILITY [None]
  - INCORRECT DOSE ADMINISTERED [None]
  - LOSS OF EMPLOYMENT [None]
  - PETIT MAL EPILEPSY [None]
  - VASCULAR BYPASS GRAFT [None]
